FAERS Safety Report 8437348-X (Version None)
Quarter: 2012Q2

REPORT INFORMATION
  Report Type: 
  Country: None (occurrence: None)
  Receive Date: 20120614
  Receipt Date: 20120313
  Transmission Date: 20120825
  Serious: No
  Sender: FDA-Public Use
  Company Number: US-AMGEN-USASP2012016539

PATIENT
  Sex: Female

DRUGS (2)
  1. PROLIA [Suspect]
     Indication: PRODUCT USED FOR UNKNOWN INDICATION
     Dosage: 60 MG, Q6MO
     Dates: start: 20120301
  2. CALCIUM [Concomitant]
     Dosage: UNK

REACTIONS (4)
  - CONSTIPATION [None]
  - HEADACHE [None]
  - DYSPEPSIA [None]
  - MUSCLE TWITCHING [None]
